FAERS Safety Report 12491876 (Version 1)
Quarter: 2016Q2

REPORT INFORMATION
  Report Type: Report from Study
  Country: BR (occurrence: BR)
  Receive Date: 20160623
  Receipt Date: 20160623
  Transmission Date: 20160815
  Serious: Yes (Hospitalization, Other)
  Sender: FDA-Public Use
  Company Number: BR-AMGEN-BRACT2012033167

PATIENT
  Age: 56 Year
  Sex: Female
  Weight: 106 kg

DRUGS (19)
  1. GLIFAGE [Concomitant]
     Active Substance: METFORMIN HYDROCHLORIDE
     Dosage: 500 MG, 2X/DAY
  2. ARTRODAR [Concomitant]
     Active Substance: DIACEREIN
     Dosage: 50 MG, 1X/DAY
  3. INSULIN [Concomitant]
     Active Substance: INSULIN NOS
     Indication: DIABETES MELLITUS
     Dosage: UNK,BID
  4. PREDSIM [Concomitant]
     Active Substance: PREDNISOLONE
     Dosage: 5 MG, 3X/DAY
  5. BETASERC [Concomitant]
     Active Substance: BETAHISTINE
     Dosage: 24 MG, 2X/DAY
  6. INSULIN [Concomitant]
     Active Substance: INSULIN NOS
     Dosage: UNK 2X/DAY
  7. INSULIN NPH                        /01223208/ [Concomitant]
     Dosage: 48 IU IN MORNING, 08 IU AT NIGHT
     Dates: start: 2012
  8. CAPILAREMA [Concomitant]
     Dosage: 75 MG, 2X/DAY
  9. ETANERCEPT [Suspect]
     Active Substance: ETANERCEPT
     Indication: RHEUMATOID ARTHRITIS
     Dosage: 50 MG, QWK
     Route: 058
     Dates: start: 20111028
  10. HYDROCHLOROTHIAZIDE. [Concomitant]
     Active Substance: HYDROCHLOROTHIAZIDE
     Indication: HYPERTENSION
     Dosage: 25 MG, 1X/DAY
  11. ETANERCEPT [Suspect]
     Active Substance: ETANERCEPT
     Dosage: 50 MG, QWK
     Route: 058
     Dates: start: 201110
  12. HYDROCHLOROTHIAZIDE. [Concomitant]
     Active Substance: HYDROCHLOROTHIAZIDE
     Dosage: 25 MG, 1X/DAY
  13. VERAPAMIL [Concomitant]
     Active Substance: VERAPAMIL HYDROCHLORIDE
     Dosage: 80 MG, 1X/DAY
  14. FLUOXETINE [Concomitant]
     Active Substance: FLUOXETINE HYDROCHLORIDE
     Dosage: UNK
  15. AMITRIL [Concomitant]
     Active Substance: AMITRIPTYLINE HYDROCHLORIDE
     Dosage: UNK
  16. VERAPAMIL [Concomitant]
     Active Substance: VERAPAMIL HYDROCHLORIDE
     Indication: HYPERTENSION
     Dosage: 80 MG, 1X/DAY
  17. FLUOXETINE [Concomitant]
     Active Substance: FLUOXETINE HYDROCHLORIDE
     Dosage: UNK
  18. PROFLAM                            /01140001/ [Concomitant]
     Dosage: 100 MG, 2X/DAY (12 IN 12 HOURS)
  19. MORPHINE [Concomitant]
     Active Substance: MORPHINE
     Dosage: UNK UNK, DAILY
     Dates: start: 2012

REACTIONS (8)
  - Cough [Not Recovered/Not Resolved]
  - Osteoporosis [Unknown]
  - Bedridden [Unknown]
  - Apnoea [Unknown]
  - Pain in extremity [Recovered/Resolved]
  - Spinal fracture [Unknown]
  - Pruritus [Not Recovered/Not Resolved]
  - Fall [Unknown]

NARRATIVE: CASE EVENT DATE: 20111028
